FAERS Safety Report 20017082 (Version 3)
Quarter: 2022Q3

REPORT INFORMATION
  Report Type: Report from Study
  Country: BR (occurrence: BR)
  Receive Date: 20211030
  Receipt Date: 20220712
  Transmission Date: 20221026
  Serious: No
  Sender: FDA-Public Use
  Company Number: BR-NOVARTISPH-NVSC2021BR236080

PATIENT
  Age: 37 Year
  Sex: Female

DRUGS (3)
  1. COSENTYX [Suspect]
     Active Substance: SECUKINUMAB
     Indication: Psoriasis
     Dosage: UNK
     Route: 065
     Dates: start: 20210930
  2. COSENTYX [Suspect]
     Active Substance: SECUKINUMAB
     Dosage: 300 MG
     Route: 065
     Dates: start: 20211021
  3. COSENTYX [Suspect]
     Active Substance: SECUKINUMAB
     Dosage: 300 MG
     Route: 065

REACTIONS (10)
  - Tuberculin test positive [Unknown]
  - Injection site pain [Recovered/Resolved]
  - Neoplasm [Recovered/Resolved]
  - Insomnia [Unknown]
  - Muscle spasms [Recovered/Resolved]
  - Product quality issue [Recovered/Resolved]
  - Skin lesion [Not Recovered/Not Resolved]
  - Feeling hot [Not Recovered/Not Resolved]
  - Scar [Not Recovered/Not Resolved]
  - Scar pain [Not Recovered/Not Resolved]

NARRATIVE: CASE EVENT DATE: 20211001
